FAERS Safety Report 9443232 (Version 1)
Quarter: 2013Q3

REPORT INFORMATION
  Report Type: Report from Study
  Country: DE (occurrence: DE)
  Receive Date: 20130806
  Receipt Date: 20130806
  Transmission Date: 20140515
  Serious: Yes (Hospitalization)
  Sender: FDA-Public Use
  Company Number: DE-ABBOTT-13P-062-1114680-00

PATIENT
  Age: 61 Year
  Sex: Male
  Weight: 67 kg

DRUGS (4)
  1. HUMIRA [Suspect]
     Indication: RHEUMATOID ARTHRITIS
     Route: 058
     Dates: start: 200809, end: 20130228
  2. HUMIRA [Suspect]
     Route: 058
     Dates: start: 20130608
  3. MTX [Concomitant]
     Indication: RHEUMATOID ARTHRITIS
     Dates: start: 200706
  4. PREDNISOLON [Concomitant]
     Indication: RHEUMATOID ARTHRITIS
     Dates: start: 200706

REACTIONS (1)
  - Tendon rupture [Unknown]
